FAERS Safety Report 6136701-7 (Version None)
Quarter: 2009Q1

REPORT INFORMATION
  Report Type: 
  Country: None (occurrence: None)
  Receive Date: 20090330
  Receipt Date: 20090323
  Transmission Date: 20090719
  Serious: Yes (Other)
  Sender: FDA-Public Use
  Company Number: PHHY2009JP10841

PATIENT

DRUGS (2)
  1. TEGRETOL [Suspect]
     Dosage: 200 MG, TID
     Route: 048
  2. DEPAS [Concomitant]

REACTIONS (2)
  - HYPOKALAEMIA [None]
  - HYPONATRAEMIA [None]
